FAERS Safety Report 7927941-2 (Version None)
Quarter: 2011Q4

REPORT INFORMATION
  Report Type: 
  Country: None (occurrence: None)
  Receive Date: 20111118
  Receipt Date: 20111115
  Transmission Date: 20120403
  Serious: No
  Sender: FDA-Public Use
  Company Number: US-JNJFOC-20111106262

PATIENT
  Sex: Male
  Weight: 108.86 kg

DRUGS (14)
  1. FOLIC ACID [Concomitant]
     Route: 065
  2. REMICADE [Suspect]
     Route: 042
  3. LASIX [Concomitant]
     Route: 065
  4. ENTOCORT EC [Concomitant]
     Indication: CYSTIC FIBROSIS
     Route: 065
  5. METOPROLOL TARTRATE [Concomitant]
     Route: 065
  6. REMICADE [Suspect]
     Indication: CROHN'S DISEASE
     Route: 042
  7. VITAMIN AND MINERAL PRENATAL SUPPLEMENT W/ FOLIC ACID CAP [Concomitant]
     Route: 065
  8. ALLOPURINOL [Concomitant]
     Route: 065
  9. PROSCAR [Concomitant]
     Route: 065
  10. ALL OTHER THERAPEUTICS [Concomitant]
     Route: 065
  11. WELCHOL [Concomitant]
     Indication: DIARRHOEA
     Dosage: 2-6 TABLETS
     Route: 065
  12. POTASSIUM [Concomitant]
     Dosage: 1-2 DAILY
     Route: 065
  13. IMURAN [Concomitant]
     Indication: CROHN'S DISEASE
     Route: 065
     Dates: start: 20111101
  14. DONNATAL [Concomitant]
     Route: 065

REACTIONS (5)
  - POOR VENOUS ACCESS [None]
  - ONYCHOMYCOSIS [None]
  - DIARRHOEA [None]
  - ACNE [None]
  - HERPES ZOSTER [None]
